FAERS Safety Report 20090969 (Version 1)
Quarter: 2021Q4

REPORT INFORMATION
  Report Type: Spontaneous
  Country: US (occurrence: US)
  Receive Date: 20211119
  Receipt Date: 20211119
  Transmission Date: 20220304
  Serious: Yes (Death, Life-Threatening, Hospitalization, Other)
  Sender: FDA-Public Use
  Company Number: US-drreddys-SPO/USA/21/0143918

PATIENT
  Age: 52 Year
  Sex: Male

DRUGS (6)
  1. TACROLIMUS [Suspect]
     Active Substance: TACROLIMUS
     Indication: Immunosuppressant drug therapy
     Dosage: HIS TACROLIMUS DOSE WAS REDUCED BY 50 PERCENT ON DAY 15, 75 PERCENT ON DAY 23, AND STOPPED ON DAY 30
  2. TACROLIMUS [Suspect]
     Active Substance: TACROLIMUS
     Dosage: RESUMED WITH A GOAL TROUGH OF 6 TO 8 NG/ML
  3. TACROLIMUS [Suspect]
     Active Substance: TACROLIMUS
     Dosage: BLOOD CONCENTRATION TROUGH GOALS OF 8 TO 10 NG/ML
     Dates: start: 201712, end: 202006
  4. TACROLIMUS [Suspect]
     Active Substance: TACROLIMUS
     Dosage: MAINTAINED TACROLIMUS WITH A GOAL TROUGH OF 5 TO 7 NG/ML
  5. MYCOPHENOLATE MOFETIL [Concomitant]
     Active Substance: MYCOPHENOLATE MOFETIL
     Indication: Immunosuppressant drug therapy
     Dates: start: 201712
  6. PREDNISONE [Concomitant]
     Active Substance: PREDNISONE
     Indication: Immunosuppressant drug therapy
     Dates: start: 201712

REACTIONS (3)
  - Chronic kidney disease [Fatal]
  - Toxicity to various agents [Fatal]
  - Renal failure [Fatal]

NARRATIVE: CASE EVENT DATE: 20190101
